FAERS Safety Report 17064682 (Version 2)
Quarter: 2019Q4

REPORT INFORMATION
  Report Type: Spontaneous
  Country: CZ (occurrence: CZ)
  Receive Date: 20191122
  Receipt Date: 20191127
  Transmission Date: 20200122
  Serious: No
  Sender: FDA-Public Use
  Company Number: CZ-009507513-1910CZE015636

PATIENT
  Sex: Female

DRUGS (2)
  1. NUVARING 0,120MG/0,015MG [Suspect]
     Active Substance: ETHINYL ESTRADIOL\ETONOGESTREL
     Dosage: UNK UNK, CYCLICAL; CONCENTRATION: 0,120/0,015 MILLIGRAM
     Route: 067
     Dates: start: 2018
  2. NUVARING 0,120MG/0,015MG [Suspect]
     Active Substance: ETHINYL ESTRADIOL\ETONOGESTREL
     Dosage: UNK UNK, CYCLICAL; CONCENTRATION: 0,120/0,015 MILLIGRAM
     Route: 067
     Dates: start: 2018

REACTIONS (4)
  - Unintentional medical device removal [Unknown]
  - Vaginal haemorrhage [Unknown]
  - Vaginal haemorrhage [Recovered/Resolved]
  - Inappropriate schedule of product administration [Unknown]

NARRATIVE: CASE EVENT DATE: 201909
